FAERS Safety Report 23628179 (Version 1)
Quarter: 2024Q1

REPORT INFORMATION
  Report Type: Spontaneous
  Country: JP (occurrence: JP)
  Receive Date: 20240313
  Receipt Date: 20240313
  Transmission Date: 20240410
  Serious: Yes (Other)
  Sender: FDA-Public Use
  Company Number: JP-ELI_LILLY_AND_COMPANY-JP202403004581

PATIENT

DRUGS (1)
  1. OLUMIANT [Suspect]
     Active Substance: BARICITINIB
     Indication: Product used for unknown indication
     Dosage: 2 MG, DAILY
     Route: 048
     Dates: start: 2023

REACTIONS (11)
  - Glomerular filtration rate decreased [Unknown]
  - Stomatitis [Recovered/Resolved]
  - Cough [Recovered/Resolved]
  - Pyrexia [Recovered/Resolved]
  - Fracture [Unknown]
  - Constipation [Unknown]
  - Diarrhoea [Unknown]
  - Pain [Recovered/Resolved]
  - Blood calcium increased [Unknown]
  - Nausea [Unknown]
  - Herpes simplex [Recovered/Resolved]

NARRATIVE: CASE EVENT DATE: 20230301
